FAERS Safety Report 11987581 (Version 1)
Quarter: 2016Q1

REPORT INFORMATION
  Report Type: Spontaneous
  Country: US (occurrence: US)
  Receive Date: 20160202
  Receipt Date: 20160202
  Transmission Date: 20160526
  Serious: No
  Sender: FDA-Public Use
  Company Number: US-009507513-1601USA003628

PATIENT
  Sex: Female
  Weight: 67.12 kg

DRUGS (1)
  1. NEXPLANON [Suspect]
     Active Substance: ETONOGESTREL
     Indication: CONTRACEPTION
     Dosage: 1 ROD UP TO 3 YEARS, IMPLANT LEFT ARM
     Route: 059
     Dates: start: 20131122

REACTIONS (3)
  - Hypophagia [Unknown]
  - Amenorrhoea [Recovered/Resolved]
  - Menstruation delayed [Unknown]

NARRATIVE: CASE EVENT DATE: 2013
